FAERS Safety Report 17901238 (Version 1)
Quarter: 2020Q2

REPORT INFORMATION
  Report Type: Spontaneous
  Country: US (occurrence: US)
  Receive Date: 20200616
  Receipt Date: 20200616
  Transmission Date: 20200714
  Serious: Yes (Other)
  Sender: FDA-Public Use
  Company Number: None

PATIENT
  Age: 62 Year
  Sex: Female

DRUGS (3)
  1. BEOVU [Suspect]
     Active Substance: BROLUCIZUMAB-DBLL
     Indication: MACULAR DEGENERATION
     Dosage: ?          OTHER FREQUENCY:EVERY 4 WEEKS;?
     Route: 031
     Dates: start: 20200306, end: 20200424
  2. AFLIBERCEPT (EYLEA), RIGHT EYE [Concomitant]
     Dates: start: 20190418, end: 20200117
  3. AFLIBERCEPT (EYLEA), LEFT EYE [Concomitant]
     Dates: start: 20181011, end: 20200204

REACTIONS (4)
  - Uveitis [None]
  - Ocular discomfort [None]
  - Photophobia [None]
  - Vitreous floaters [None]

NARRATIVE: CASE EVENT DATE: 20200615
